FAERS Safety Report 6202838-7 (Version None)
Quarter: 2009Q2

REPORT INFORMATION
  Report Type: 
  Country: None (occurrence: None)
  Receive Date: 20090520
  Receipt Date: 20090508
  Transmission Date: 20091009
  Serious: Yes (Hospitalization)
  Sender: FDA-Public Use
  Company Number: 2009AL002905

PATIENT
  Age: 64 Year
  Sex: Female

DRUGS (5)
  1. METFORMIN HCL [Suspect]
     Indication: TYPE 2 DIABETES MELLITUS
     Dosage: 3000 MG;QD
  2. ALLOPURINOL [Concomitant]
  3. VERAPAMIL [Concomitant]
  4. IRBESARTAN [Concomitant]
  5. FUROSEMIDE [Concomitant]

REACTIONS (18)
  - ABDOMINAL PAIN [None]
  - ANOREXIA [None]
  - ANURIA [None]
  - BLOOD PRESSURE DIASTOLIC DECREASED [None]
  - CONFUSIONAL STATE [None]
  - CYSTOCELE [None]
  - DIALYSIS [None]
  - ENTEROCELE [None]
  - HYPOGLYCAEMIA [None]
  - HYSTEROCELE [None]
  - LACTIC ACIDOSIS [None]
  - NAUSEA [None]
  - OEDEMA [None]
  - OLIGURIA [None]
  - RALES [None]
  - SOMNOLENCE [None]
  - TACHYPNOEA [None]
  - VOMITING [None]
